FAERS Safety Report 19307473 (Version 2)
Quarter: 2022Q1

REPORT INFORMATION
  Report Type: Spontaneous
  Country: US (occurrence: US)
  Receive Date: 20210526
  Receipt Date: 20220118
  Transmission Date: 20220424
  Serious: No
  Sender: FDA-Public Use
  Company Number: US-PFIZER INC-2020150220

PATIENT
  Age: 73 Year
  Sex: Female
  Weight: 47.63 kg

DRUGS (2)
  1. XELJANZ XR [Suspect]
     Active Substance: TOFACITINIB CITRATE
     Indication: Rheumatoid arthritis
     Dosage: 11 MG, ALTERNATE DAY [EVERY OTHER DAY]
  2. XELJANZ XR [Suspect]
     Active Substance: TOFACITINIB CITRATE
     Dosage: 11 MG, (ONE EVERY OTHER DAY)

REACTIONS (5)
  - Off label use [Unknown]
  - Product use issue [Unknown]
  - Loss of personal independence in daily activities [Unknown]
  - Product prescribing issue [Unknown]
  - Pain [Unknown]
